APPROVED DRUG PRODUCT: TEPADINA AND SODIUM CHLORIDE
Active Ingredient: THIOTEPA
Strength: 200MG
Dosage Form/Route: POWDER;INTRAVENOUS
Application: N208264 | Product #003
Applicant: ADIENNE SA
Approved: Apr 10, 2025 | RLD: Yes | RS: Yes | Type: RX

PATENTS:
Patent 9931458 | Expires: May 31, 2037